FAERS Safety Report 20646761 (Version 2)
Quarter: 2022Q2

REPORT INFORMATION
  Report Type: Spontaneous
  Country: US (occurrence: US)
  Receive Date: 20220329
  Receipt Date: 20220412
  Transmission Date: 20220721
  Serious: Yes (Hospitalization, Other)
  Sender: FDA-Public Use
  Company Number: NL-ALKEM LABORATORIES LIMITED-NL-ALKEM-2022-02474

PATIENT
  Age: 54 Year
  Sex: Female

DRUGS (1)
  1. PREGABALIN [Suspect]
     Active Substance: PREGABALIN
     Indication: Product used for unknown indication
     Dosage: 3825 MILLIGRAM
     Route: 065

REACTIONS (7)
  - Depressed level of consciousness [Unknown]
  - Seizure [Unknown]
  - Tachycardia [Unknown]
  - Nystagmus [Unknown]
  - Hypertension [Unknown]
  - Intentional overdose [Unknown]
  - Oxygen saturation decreased [Unknown]
